FAERS Safety Report 18511061 (Version 1)
Quarter: 2020Q4

REPORT INFORMATION
  Report Type: Spontaneous
  Country: AT (occurrence: AT)
  Receive Date: 20201117
  Receipt Date: 20201117
  Transmission Date: 20210114
  Serious: Yes (Other)
  Sender: FDA-Public Use
  Company Number: AT-MYLANLABS-2020M1093925

PATIENT
  Age: 38 Year
  Sex: Female

DRUGS (6)
  1. PREGABALIN. [Suspect]
     Active Substance: PREGABALIN
     Dosage: 75 MG, BID
     Route: 065
  2. DRONABINOL. [Suspect]
     Active Substance: DRONABINOL
     Indication: DEPRESSION
     Dosage: 12.5 MG, DAILY [3X5 DROPS]
     Route: 065
  3. HYDROMORPHONE [Suspect]
     Active Substance: HYDROMORPHONE
     Dosage: 2 MG, BID [REPROTED AS 1-0-1]
     Route: 048
  4. PREGABALIN. [Suspect]
     Active Substance: PREGABALIN
     Indication: NEURALGIA
     Dosage: 200 MG, BID [REPROTED AS 1-0-1]
     Route: 065
  5. HYDROMORPHONE [Suspect]
     Active Substance: HYDROMORPHONE
     Indication: NEURALGIA
     Dosage: 8 MG, BID [REPROTED AS 1-0-1]
     Route: 048
  6. DRONABINOL. [Suspect]
     Active Substance: DRONABINOL
     Indication: NEURALGIA
     Dosage: UNK
     Route: 065

REACTIONS (6)
  - Dizziness [Recovered/Resolved]
  - Sensory disturbance [Unknown]
  - Depression [Unknown]
  - Drug ineffective [Unknown]
  - Asocial behaviour [Unknown]
  - Allodynia [Unknown]
